FAERS Safety Report 25829795 (Version 1)
Quarter: 2025Q3

REPORT INFORMATION
  Report Type: Spontaneous
  Country: CN (occurrence: CN)
  Receive Date: 20250922
  Receipt Date: 20250922
  Transmission Date: 20251021
  Serious: Yes (Hospitalization, Other)
  Sender: ALEXION PHARMACEUTICALS
  Company Number: CN-ASTRAZENECA-202509CHN016218CN

PATIENT
  Age: 76 Year
  Sex: Male

DRUGS (2)
  1. IMFINZI [Suspect]
     Active Substance: DURVALUMAB
     Indication: Chemotherapy
     Dates: start: 20250822, end: 20250822
  2. SODIUM CHLORIDE [Concomitant]
     Active Substance: SODIUM CHLORIDE
     Dates: start: 20250822, end: 20250822

REACTIONS (2)
  - Myelosuppression [Unknown]
  - Eczema [Unknown]

NARRATIVE: CASE EVENT DATE: 20250912
